FAERS Safety Report 21187000 (Version 1)
Quarter: 2022Q3

REPORT INFORMATION
  Report Type: Report from Study
  Country: CO (occurrence: CO)
  Receive Date: 20220808
  Receipt Date: 20220808
  Transmission Date: 20221026
  Serious: Yes (Other)
  Sender: FDA-Public Use
  Company Number: CO-ABBVIE-22K-036-4495595-00

PATIENT
  Sex: Female
  Weight: 85 kg

DRUGS (1)
  1. HUMIRA [Suspect]
     Active Substance: ADALIMUMAB
     Indication: Colitis ulcerative
     Route: 058
     Dates: start: 20220310

REACTIONS (4)
  - Haemorrhage [Recovering/Resolving]
  - Constipation [Recovering/Resolving]
  - Colitis ulcerative [Recovering/Resolving]
  - Pain [Recovering/Resolving]
